FAERS Safety Report 4345608-7 (Version None)
Quarter: 2004Q2

REPORT INFORMATION
  Report Type: 
  Country: None (occurrence: None)
  Receive Date: 20040421
  Receipt Date: 20040409
  Transmission Date: 20050107
  Serious: Yes (Hospitalization, Other)
  Sender: FDA-Public Use
  Company Number: 2004-01515

PATIENT
  Age: 84 Year
  Sex: Male

DRUGS (1)
  1. METOCLOPRAMIDE [Suspect]
     Indication: GASTROINTESTINAL MOTILITY DISORDER
     Dosage: 10 MG, TID, ORAL
     Route: 048
     Dates: end: 20030101

REACTIONS (2)
  - FAILURE TO THRIVE [None]
  - PARKINSONISM [None]
